FAERS Safety Report 23919982 (Version 7)
Quarter: 2025Q1

REPORT INFORMATION
  Report Type: Spontaneous
  Country: CA (occurrence: CA)
  Receive Date: 20240530
  Receipt Date: 20250321
  Transmission Date: 20250409
  Serious: Yes (Other)
  Sender: PFIZER
  Company Number: CA-PFIZER INC-202400179606

PATIENT
  Age: 77 Year
  Sex: Female
  Weight: 60 kg

DRUGS (24)
  1. RUXIENCE [Suspect]
     Active Substance: RITUXIMAB-PVVR
     Indication: Rheumatoid arthritis
     Route: 042
     Dates: start: 20220413, end: 20220427
  2. RUXIENCE [Suspect]
     Active Substance: RITUXIMAB-PVVR
     Route: 042
     Dates: start: 20230309, end: 20230323
  3. RUXIENCE [Suspect]
     Active Substance: RITUXIMAB-PVVR
     Route: 042
     Dates: start: 20230920, end: 20231004
  4. RUXIENCE [Suspect]
     Active Substance: RITUXIMAB-PVVR
     Route: 042
     Dates: start: 20231004
  5. RUXIENCE [Suspect]
     Active Substance: RITUXIMAB-PVVR
     Route: 042
     Dates: start: 20240711
  6. RUXIENCE [Suspect]
     Active Substance: RITUXIMAB-PVVR
     Route: 042
     Dates: start: 20240723
  7. AMLODIPINE [Concomitant]
     Active Substance: AMLODIPINE BESYLATE
     Dosage: 5 MG, 1X/DAY (A DAY)
     Route: 048
  8. BISOPROLOL [Concomitant]
     Active Substance: BISOPROLOL
     Dosage: 2.5 MG, 1X/DAY (A DAY)
     Route: 048
  9. CHONDROITIN SULFATE (BOVINE) [Concomitant]
     Active Substance: CHONDROITIN SULFATE (BOVINE)
  10. CLOPIDOGREL [Concomitant]
     Active Substance: CLOPIDOGREL BISULFATE
     Dosage: 75 MG, 1X/DAY (A DAY)
  11. IRON [Concomitant]
     Active Substance: IRON
  12. MONTELUKAST [Concomitant]
     Active Substance: MONTELUKAST
     Dosage: 10 MG, 1X/DAY
     Route: 048
  13. LANSOPRAZOLE [Concomitant]
     Active Substance: LANSOPRAZOLE
     Dosage: 30 MG, 1X/DAY
     Route: 048
  14. LEVOTHYROXINE [Concomitant]
     Active Substance: LEVOTHYROXINE
     Route: 048
  15. PREDNISONE [Concomitant]
     Active Substance: PREDNISONE
     Route: 048
     Dates: start: 20230523, end: 20240523
  16. PREDNISONE [Concomitant]
     Active Substance: PREDNISONE
     Dosage: 2.5 MG, DAILY
  17. PREDNISONE [Concomitant]
     Active Substance: PREDNISONE
  18. ROSUVASTATIN [Concomitant]
     Active Substance: ROSUVASTATIN
     Dosage: 20 MG, 1X/DAY
     Route: 048
  19. SYNTHROID [Concomitant]
     Active Substance: LEVOTHYROXINE SODIUM
     Dosage: 0.075 MG, 1X/DAY (A DAY)
  20. TRANDOLAPRIL [Concomitant]
     Active Substance: TRANDOLAPRIL
     Dosage: 4 MG, 1X/DAY (A DAY)
     Route: 048
  21. VAGIFEM [Concomitant]
     Active Substance: ESTRADIOL
     Dosage: 10 MG, 2X/WEEK
  22. VAGIFEM [Concomitant]
     Active Substance: ESTRADIOL
     Route: 067
  23. VITAMIN D3 [Concomitant]
     Active Substance: CHOLECALCIFEROL
     Dosage: 1000 IU, 1X/DAY
     Route: 048
  24. WEBBER NATURALS ALL GREENS [Concomitant]
     Dosage: UNK, 1X/DAY
     Route: 048

REACTIONS (20)
  - Spinal stenosis [Unknown]
  - Hepatitis B [Unknown]
  - Renal impairment [Unknown]
  - Condition aggravated [Recovering/Resolving]
  - Lower respiratory tract infection [Unknown]
  - Nerve compression [Unknown]
  - Crepitations [Unknown]
  - Blood creatinine increased [Unknown]
  - Blood urea increased [Unknown]
  - Blood glucose increased [Unknown]
  - Blood phosphorus decreased [Unknown]
  - C-reactive protein increased [Recovering/Resolving]
  - Haemoglobin decreased [Unknown]
  - Spondylolisthesis [Unknown]
  - Glomerular filtration rate increased [Unknown]
  - Blood potassium increased [Unknown]
  - Blood alkaline phosphatase increased [Unknown]
  - Blood pressure systolic increased [Unknown]
  - Osteoarthritis [Unknown]
  - Bronchitis [Unknown]

NARRATIVE: CASE EVENT DATE: 20240101
